FAERS Safety Report 5313013-2 (Version None)
Quarter: 2007Q2

REPORT INFORMATION
  Report Type: 
  Country: None (occurrence: None)
  Receive Date: 20070430
  Receipt Date: 20070419
  Transmission Date: 20071010
  Serious: Yes (Other)
  Sender: FDA-Public Use
  Company Number: US-PFIZER INC-2007018094

PATIENT
  Sex: Male
  Weight: 94.3 kg

DRUGS (1)
  1. LIPITOR [Suspect]
     Indication: BLOOD CHOLESTEROL INCREASED
     Dates: start: 20061101, end: 20070409

REACTIONS (5)
  - ARTHRALGIA [None]
  - BACK PAIN [None]
  - FATIGUE [None]
  - HYPERHIDROSIS [None]
  - WEIGHT LOSS POOR [None]
